FAERS Safety Report 13151690 (Version 1)
Quarter: 2017Q1

REPORT INFORMATION
  Report Type: Spontaneous
  Country: JP (occurrence: JP)
  Receive Date: 20170125
  Receipt Date: 20170125
  Transmission Date: 20170428
  Serious: Yes (Hospitalization)
  Sender: FDA-Public Use
  Company Number: JP-TAKEDA-TCI2013A03107

PATIENT
  Age: 39 Year
  Sex: Female
  Weight: 50 kg

DRUGS (1)
  1. LAMPION PACK [Suspect]
     Active Substance: AMOXICILLIN\LANSOPRAZOLE\METRONIDAZOLE
     Indication: HELICOBACTER INFECTION
     Dosage: 0.5 CARD, UNK, BID
     Route: 048
     Dates: start: 20130520, end: 20130525

REACTIONS (1)
  - Enterocolitis haemorrhagic [Recovered/Resolved]

NARRATIVE: CASE EVENT DATE: 20130525
